FAERS Safety Report 11422452 (Version 1)
Quarter: 2015Q3

REPORT INFORMATION
  Report Type: Spontaneous
  Country: US (occurrence: None)
  Receive Date: 20150826
  Receipt Date: 20150826
  Transmission Date: 20151125
  Serious: Yes (Hospitalization)
  Sender: FDA-Public Use
  Company Number: None

PATIENT
  Age: 84 Year
  Sex: Male
  Weight: 100 kg

DRUGS (1)
  1. RIVAROXABAN [Suspect]
     Active Substance: RIVAROXABAN
     Route: 048
     Dates: start: 20150708, end: 20150823

REACTIONS (4)
  - Gastric haemorrhage [None]
  - Fatigue [None]
  - Haemoglobin decreased [None]
  - Dyspnoea [None]

NARRATIVE: CASE EVENT DATE: 20150823
